FAERS Safety Report 9352070 (Version 1)
Quarter: 2013Q2

REPORT INFORMATION
  Report Type: Spontaneous
  Country: ES (occurrence: None)
  Receive Date: 20130612
  Receipt Date: 20130612
  Transmission Date: 20140414
  Serious: Yes (Other)
  Sender: FDA-Public Use
  Company Number: SYM-2013-04629

PATIENT
  Age: 77 Year
  Sex: Male

DRUGS (6)
  1. CICLOPIROX [Suspect]
     Indication: DERMATITIS
     Dosage: 2 IN 1 D
     Route: 061
     Dates: start: 20090316, end: 20090331
  2. ACENOCOUMAROL [Suspect]
     Indication: ANTICOAGULANT THERAPY
     Route: 048
     Dates: start: 2007
  3. BISOPROLOL(BISOPROLOL)(BISOPROLOL) [Concomitant]
  4. DIGOXIN(DIGOXIN)(DIGOXIN) [Concomitant]
  5. SERTRALINE(SERTRALINE)(SERTRALINE) [Concomitant]
  6. OMEPRAZOLE(OMEPRAZOLE)(OMEPRAZOLE) [Concomitant]

REACTIONS (3)
  - International normalised ratio increased [None]
  - Drug interaction [None]
  - Rectal haemorrhage [None]
